FAERS Safety Report 11075358 (Version 1)
Quarter: 2015Q2

REPORT INFORMATION
  Report Type: Spontaneous
  Country: US (occurrence: None)
  Receive Date: 20150428
  Receipt Date: 20150428
  Transmission Date: 20150821
  Serious: Yes (Disabling)
  Sender: FDA-Public Use
  Company Number: None

PATIENT
  Age: 60 Year
  Sex: Female
  Weight: 58.97 kg

DRUGS (11)
  1. GLUCOSAMINE/CHONDROITIN [Concomitant]
  2. VITAMIN D3 [Concomitant]
     Active Substance: CHOLECALCIFEROL
  3. MEDTRONIC PACEMAKER [Concomitant]
  4. LOVAZA [Concomitant]
     Active Substance: OMEGA-3-ACID ETHYL ESTERS
  5. MULTIVITAMIN [Concomitant]
     Active Substance: VITAMINS
  6. GLUCOPHAGE [Concomitant]
     Active Substance: METFORMIN HYDROCHLORIDE
  7. XANAX XR [Concomitant]
     Active Substance: ALPRAZOLAM
  8. CYTOMEL [Suspect]
     Active Substance: LIOTHYRONINE SODIUM
     Indication: SECONDARY HYPOTHYROIDISM
     Route: 048
     Dates: start: 20150315, end: 20150427
  9. EFFEXOR XR [Concomitant]
     Active Substance: VENLAFAXINE HYDROCHLORIDE
  10. XARELTO [Concomitant]
     Active Substance: RIVAROXABAN
  11. INDERAL [Concomitant]
     Active Substance: PROPRANOLOL HYDROCHLORIDE

REACTIONS (6)
  - Impaired work ability [None]
  - Haemorrhoids [None]
  - Condition aggravated [None]
  - Constipation [None]
  - Hypothyroidism [None]
  - Impaired driving ability [None]

NARRATIVE: CASE EVENT DATE: 20150401
